FAERS Safety Report 5383296-1 (Version None)
Quarter: 2007Q3

REPORT INFORMATION
  Report Type: 
  Country: None (occurrence: None)
  Receive Date: 20070710
  Receipt Date: 20070626
  Transmission Date: 20080115
  Serious: Yes (Other)
  Sender: FDA-Public Use
  Company Number: US-PFIZER INC-2007052861

PATIENT
  Sex: Female
  Weight: 70.3 kg

DRUGS (7)
  1. CHANTIX [Suspect]
     Indication: SMOKING CESSATION THERAPY
     Dates: start: 20070618, end: 20070621
  2. CELEBREX [Suspect]
     Indication: INFLAMMATION
  3. PLAVIX [Concomitant]
  4. THEOPHYLLINE [Concomitant]
  5. PULMICORT [Concomitant]
  6. SEREVENT [Concomitant]
  7. ASTELIN [Concomitant]

REACTIONS (4)
  - ABDOMINAL PAIN UPPER [None]
  - CHEST DISCOMFORT [None]
  - CHEST PAIN [None]
  - DYSPEPSIA [None]
